FAERS Safety Report 10553277 (Version 1)
Quarter: 2014Q4

REPORT INFORMATION
  Report Type: Spontaneous
  Country: IN (occurrence: IN)
  Receive Date: 20141030
  Receipt Date: 20141030
  Transmission Date: 20150529
  Serious: Yes (Hospitalization)
  Sender: FDA-Public Use
  Company Number: IN-AUROBINDO-AUR-APL-2014-11292

PATIENT
  Age: 28 Year
  Sex: Female

DRUGS (2)
  1. ATENOLOL TABLETS BP 50 MG [Suspect]
     Active Substance: ATENOLOL
     Indication: PRODUCT USED FOR UNKNOWN INDICATION
     Dosage: 950 MG, UNK
     Route: 048
  2. AURO - AMLODIPINE TABLETS 5 MG [Suspect]
     Active Substance: AMLODIPINE BESYLATE
     Indication: PRODUCT USED FOR UNKNOWN INDICATION
     Dosage: 95 MG, UNK
     Route: 048

REACTIONS (11)
  - Hyperglycaemia [Unknown]
  - Borderline personality disorder [Unknown]
  - Intentional overdose [None]
  - Renal injury [Unknown]
  - Bradycardia [Recovered/Resolved]
  - Polyuria [Unknown]
  - Haematuria [Unknown]
  - Oliguria [Unknown]
  - Hypotension [Recovered/Resolved]
  - Intentional overdose [Unknown]
  - Toxicity to various agents [None]
